FAERS Safety Report 19002897 (Version 3)
Quarter: 2021Q2

REPORT INFORMATION
  Report Type: Spontaneous
  Country: JP (occurrence: JP)
  Receive Date: 20210312
  Receipt Date: 20210616
  Transmission Date: 20210717
  Serious: Yes (Other)
  Sender: FDA-Public Use
  Company Number: JP-PFIZER INC-2021117190

PATIENT
  Sex: Male

DRUGS (4)
  1. SOLANAX [Suspect]
     Active Substance: ALPRAZOLAM
     Indication: TINNITUS
     Dosage: 0.4 MG, 3X/DAY (IN THE MORNING, DAY AND NIGHT)
     Route: 048
  2. METHYCOBAL [Concomitant]
     Active Substance: METHYLCOBALAMIN
     Indication: TINNITUS
     Dosage: UNK
  3. DEPAS [ETIZOLAM] [Concomitant]
     Active Substance: ETIZOLAM
     Dosage: UNK
  4. ATP [ADENOSINE TRIPHOSPHATE, DISODIUM SALT] [Concomitant]
     Indication: TINNITUS
     Dosage: UNK

REACTIONS (3)
  - Off label use [Unknown]
  - Cerebral infarction [Unknown]
  - Drug ineffective for unapproved indication [Unknown]
